FAERS Safety Report 4889463-5 (Version None)
Quarter: 2006Q1

REPORT INFORMATION
  Report Type: 
  Country: None (occurrence: None)
  Receive Date: 20060120
  Receipt Date: 20060111
  Transmission Date: 20060701
  Serious: Yes (Hospitalization)
  Sender: FDA-Public Use
  Company Number: HQWYE309112JAN06

PATIENT
  Age: 16 Year
  Sex: Female

DRUGS (11)
  1. EFFEXOR XR [Suspect]
     Dosage: ORAL
     Route: 048
  2. ZYPREXA [Suspect]
     Indication: AFFECTIVE DISORDER
     Dosage: 2.5 MG 1X PER 1 DAY ORAL
     Route: 048
  3. ..... [Concomitant]
  4. ............ [Concomitant]
  5. .......... [Concomitant]
  6. ........... [Concomitant]
  7. ............. [Concomitant]
  8. ............ [Concomitant]
  9. ................. [Concomitant]
  10. ................... [Concomitant]
  11. ................ [Concomitant]

REACTIONS (1)
  - ORTHOSTATIC HYPOTENSION [None]
